FAERS Safety Report 10904396 (Version 1)
Quarter: 2015Q1

REPORT INFORMATION
  Report Type: Spontaneous
  Country: US (occurrence: None)
  Receive Date: 20150304
  Receipt Date: 20150304
  Transmission Date: 20150721
  Serious: Yes (Disabling)
  Sender: FDA-Public Use
  Company Number: None

PATIENT
  Age: 2 Month
  Sex: Female
  Weight: 63.05 kg

DRUGS (1)
  1. AMOXICILLIN 875 MG AUROBINDO [Suspect]
     Active Substance: AMOXICILLIN
     Indication: DRUG THERAPY
     Dosage: ?1 PILL TAKEN BY MOUTH
     Dates: start: 20150222, end: 20150226

REACTIONS (2)
  - Headache [None]
  - Sensory disturbance [None]

NARRATIVE: CASE EVENT DATE: 20150222
